FAERS Safety Report 9059477 (Version 1)
Quarter: 2013Q1

REPORT INFORMATION
  Report Type: Report from Study
  Country: AT (occurrence: AT)
  Receive Date: 20130211
  Receipt Date: 20130211
  Transmission Date: 20140127
  Serious: Yes (Hospitalization)
  Sender: FDA-Public Use
  Company Number: AT-JNJFOC-20130204696

PATIENT
  Age: 90 None
  Sex: Female
  Weight: 76.3 kg

DRUGS (20)
  1. RIVAROXABAN [Suspect]
     Indication: THROMBOSIS PROPHYLAXIS
     Route: 065
     Dates: start: 20120918, end: 20130119
  2. RIVAROXABAN [Suspect]
     Indication: THROMBOSIS PROPHYLAXIS
     Route: 065
  3. RIVAROXABAN [Suspect]
     Indication: CEREBROVASCULAR ACCIDENT PROPHYLAXIS
     Route: 065
     Dates: start: 20120918, end: 20130119
  4. RIVAROXABAN [Suspect]
     Indication: CEREBROVASCULAR ACCIDENT PROPHYLAXIS
     Route: 065
  5. LISINOPRIL [Concomitant]
     Dates: start: 20120929
  6. LISINOPRIL [Concomitant]
     Dates: end: 20120915
  7. MILNACIPRAN HYDROCHLORIDE [Concomitant]
     Dates: start: 20120929
  8. XANOR [Concomitant]
  9. MIRTABENE [Concomitant]
     Dates: start: 20120917
  10. MIRTABENE [Concomitant]
     Dates: start: 20120917
  11. ZOLDEM [Concomitant]
  12. DIGIMERCK [Concomitant]
     Dates: start: 20120917
  13. NOMEXOR [Concomitant]
     Dates: start: 20120916, end: 20120918
  14. CONCOR [Concomitant]
     Dates: start: 20120918
  15. UNASYN [Concomitant]
     Dates: start: 20120917, end: 20120920
  16. LUTEIN [Concomitant]
  17. SEDACORON [Concomitant]
     Dates: start: 20120929
  18. GINKGO BILOBA [Concomitant]
     Dates: start: 20120929
  19. LOVENOX [Concomitant]
     Dates: start: 20120915, end: 20120918
  20. LOVENOX [Concomitant]
     Dates: start: 20130120

REACTIONS (2)
  - Nausea [Recovered/Resolved]
  - General physical health deterioration [Recovered/Resolved]
